FAERS Safety Report 10760214 (Version 1)
Quarter: 2015Q1

REPORT INFORMATION
  Report Type: Spontaneous
  Country: DE (occurrence: DE)
  Receive Date: 20150204
  Receipt Date: 20150204
  Transmission Date: 20150721
  Serious: Yes (Hospitalization)
  Sender: FDA-Public Use
  Company Number: DE-AMGEN-DEUSP2015008558

PATIENT
  Age: 89 Year
  Sex: Female

DRUGS (9)
  1. HYLAN [Concomitant]
     Dosage: UNK UNK, TID
  2. PROLIA [Suspect]
     Active Substance: DENOSUMAB
     Indication: OSTEOPOROSIS
     Dosage: 80 MG, UNK
     Route: 058
     Dates: start: 20131014
  3. VITAMIN D                          /00107901/ [Concomitant]
     Active Substance: ERGOCALCIFEROL
     Dosage: UNK UNK, QD
  4. OMEPRAZOLE. [Concomitant]
     Active Substance: OMEPRAZOLE
     Dosage: 20 MG, QD
  5. CALCIUM [Concomitant]
     Active Substance: CALCIUM
     Dosage: UNK UNK, QD
  6. VITA                               /00056102/ [Concomitant]
     Dosage: UNK UNK, QD
  7. CONCOR [Concomitant]
     Active Substance: BISOPROLOL FUMARATE
     Dosage: 3 MG, AS NECESSARY HALF TABLET
  8. XARELTO [Concomitant]
     Active Substance: RIVAROXABAN
     Dosage: 20 MG, QD
  9. DIOVAN [Concomitant]
     Active Substance: VALSARTAN
     Dosage: 80 MG, AS NECESSARY HALF TABLET

REACTIONS (1)
  - Tongue eruption [Recovering/Resolving]

NARRATIVE: CASE EVENT DATE: 20141023
